FAERS Safety Report 23877940 (Version 2)
Quarter: 2024Q3

REPORT INFORMATION
  Report Type: Spontaneous
  Country: JP (occurrence: JP)
  Receive Date: 20240521
  Receipt Date: 20240822
  Transmission Date: 20241017
  Serious: Yes (Other)
  Sender: JOHNSON AND JOHNSON
  Company Number: JP-JNJFOC-20230842549

PATIENT
  Age: 61 Year
  Sex: Male

DRUGS (10)
  1. UPTRAVI [Suspect]
     Active Substance: SELEXIPAG
     Indication: Pulmonary hypertension
     Route: 048
     Dates: start: 20230727, end: 20231006
  2. UPTRAVI [Suspect]
     Active Substance: SELEXIPAG
     Route: 048
     Dates: start: 20231007, end: 2023
  3. UPTRAVI [Suspect]
     Active Substance: SELEXIPAG
     Route: 048
     Dates: start: 20231117
  4. UPTRAVI [Suspect]
     Active Substance: SELEXIPAG
     Route: 048
     Dates: start: 20230726, end: 20230822
  5. UPTRAVI [Suspect]
     Active Substance: SELEXIPAG
     Route: 048
     Dates: start: 20230823, end: 20231005
  6. UPTRAVI [Suspect]
     Active Substance: SELEXIPAG
     Route: 048
     Dates: start: 20231006, end: 20231116
  7. UPTRAVI [Suspect]
     Active Substance: SELEXIPAG
     Route: 048
     Dates: start: 20231117
  8. XARELTO [Concomitant]
     Active Substance: RIVAROXABAN
  9. OLMESARTAN [Concomitant]
     Active Substance: OLMESARTAN
  10. LOPERAMIDE [Concomitant]
     Active Substance: LOPERAMIDE
     Indication: Diarrhoea

REACTIONS (13)
  - Laryngeal obstruction [Not Recovered/Not Resolved]
  - Abdominal pain upper [Not Recovered/Not Resolved]
  - Dyspnoea exertional [Not Recovered/Not Resolved]
  - Malaise [Not Recovered/Not Resolved]
  - Palpitations [Not Recovered/Not Resolved]
  - Chest pain [Not Recovered/Not Resolved]
  - Dizziness postural [Not Recovered/Not Resolved]
  - Oedema peripheral [Not Recovered/Not Resolved]
  - Faeces soft [Not Recovered/Not Resolved]
  - Oral mucosa haematoma [Not Recovered/Not Resolved]
  - Epistaxis [Not Recovered/Not Resolved]
  - Diarrhoea [Not Recovered/Not Resolved]
  - Dysphonia [Not Recovered/Not Resolved]

NARRATIVE: CASE EVENT DATE: 20230701
